FAERS Safety Report 4462422-2 (Version None)
Quarter: 2004Q3

REPORT INFORMATION
  Report Type: 
  Country: None (occurrence: None)
  Receive Date: 20040924
  Receipt Date: 20040909
  Transmission Date: 20050211
  Serious: Yes (Hospitalization)
  Sender: FDA-Public Use
  Company Number: A01200404328

PATIENT
  Age: 61 Year
  Sex: Female

DRUGS (3)
  1. PLAQUENIL [Suspect]
     Indication: OSTEOARTHRITIS
     Dosage: 200 MG OD
     Route: 048
     Dates: start: 20030913, end: 20030914
  2. DICLOFENAC [Concomitant]
  3. MISOPROSTOL [Concomitant]

REACTIONS (4)
  - ALVEOLITIS FIBROSING [None]
  - INTERSTITIAL LUNG DISEASE [None]
  - OXYGEN SATURATION DECREASED [None]
  - RASH PRURITIC [None]
